FAERS Safety Report 17439717 (Version 1)
Quarter: 2020Q1

REPORT INFORMATION
  Report Type: Report from Study
  Country: GB (occurrence: GB)
  Receive Date: 20200220
  Receipt Date: 20200220
  Transmission Date: 20200409
  Serious: Yes (Other)
  Sender: FDA-Public Use
  Company Number: GB-ROCHE-2547278

PATIENT
  Sex: Male

DRUGS (12)
  1. ATENOLOL. [Concomitant]
     Active Substance: ATENOLOL
  2. LEFLUNOMIDE. [Concomitant]
     Active Substance: LEFLUNOMIDE
  3. ROACTEMRA [Suspect]
     Active Substance: TOCILIZUMAB
     Indication: RHEUMATOID ARTHRITIS
     Route: 058
     Dates: start: 20180711
  4. AMITRIPTYLINE [Concomitant]
     Active Substance: AMITRIPTYLINE
  5. ZAPAIN [Concomitant]
     Active Substance: ACETAMINOPHEN\CODEINE PHOSPHATE
  6. ATORVASTATIN [Concomitant]
     Active Substance: ATORVASTATIN
  7. LANSOPRAZOLE. [Concomitant]
     Active Substance: LANSOPRAZOLE
  8. ASPIRIN [ACETYLSALICYLIC ACID] [Concomitant]
     Active Substance: ASPIRIN
  9. PREDNISOLONE. [Concomitant]
     Active Substance: PREDNISOLONE
  10. FOLIC ACID. [Concomitant]
     Active Substance: FOLIC ACID
  11. ADCAL D3 [Concomitant]
     Active Substance: CALCIUM CARBONATE\CHOLECALCIFEROL
  12. PREGABALIN. [Concomitant]
     Active Substance: PREGABALIN

REACTIONS (4)
  - Abscess [Unknown]
  - Malaise [Unknown]
  - Anxiety [Unknown]
  - Spinal fracture [Unknown]
